FAERS Safety Report 6607670-8 (Version None)
Quarter: 2010Q1

REPORT INFORMATION
  Report Type: 
  Country: None (occurrence: None)
  Receive Date: 20100223
  Receipt Date: 20100210
  Transmission Date: 20100710
  Serious: Yes (Hospitalization)
  Sender: FDA-Public Use
  Company Number: 201002011

PATIENT
  Age: 67 Year
  Sex: Male

DRUGS (3)
  1. TESTIM [Suspect]
     Indication: HYPOGONADISM
     Dosage: 100 MG DAILY, TRANSDERMAL; 100 MG, DAILY, TRANSDERMAL; TRANSDERMAL
     Route: 062
     Dates: start: 20081201, end: 20090101
  2. TESTIM [Suspect]
     Indication: HYPOGONADISM
     Dosage: 100 MG DAILY, TRANSDERMAL; 100 MG, DAILY, TRANSDERMAL; TRANSDERMAL
     Route: 062
     Dates: start: 20090101, end: 20091101
  3. TESTOSTERONE [Suspect]
     Indication: BLOOD TESTOSTERONE ABNORMAL
     Dosage: INJECTION

REACTIONS (3)
  - BLOOD TESTOSTERONE DECREASED [None]
  - DYSPNOEA [None]
  - POLYCYTHAEMIA [None]
